FAERS Safety Report 25247147 (Version 6)
Quarter: 2025Q4

REPORT INFORMATION
  Report Type: Spontaneous
  Country: US (occurrence: US)
  Receive Date: 20250428
  Receipt Date: 20251231
  Transmission Date: 20260118
  Serious: No
  Sender: TRAVERE THERAPEUTICS
  Company Number: US-TRAVERE-2025TVT00360

PATIENT
  Sex: Female

DRUGS (3)
  1. FILSPARI [Suspect]
     Active Substance: SPARSENTAN
     Indication: IgA nephropathy
     Route: 048
     Dates: start: 202411
  2. FILSPARI [Suspect]
     Active Substance: SPARSENTAN
     Indication: Haematuria
  3. TARPEYO [Concomitant]
     Active Substance: BUDESONIDE

REACTIONS (6)
  - Nasopharyngitis [Unknown]
  - Blood creatinine abnormal [Unknown]
  - Off label use [Unknown]
  - Eye infection [Unknown]
  - Fungal infection [Unknown]
  - Blood potassium increased [Unknown]
